FAERS Safety Report 4718180-7 (Version None)
Quarter: 2005Q3

REPORT INFORMATION
  Report Type: 
  Country: None (occurrence: None)
  Receive Date: 20050720
  Receipt Date: 20050516
  Transmission Date: 20060218
  Serious: Yes (Hospitalization)
  Sender: FDA-Public Use
  Company Number: BR-ROCHE-404719

PATIENT
  Age: 37 Year
  Sex: Female
  Weight: 67.6 kg

DRUGS (6)
  1. PEG-INTERFERON ALFA 2A (RO 25-8310) [Suspect]
     Route: 058
     Dates: start: 20041122, end: 20050509
  2. PEG-INTERFERON ALFA 2A (RO 25-8310) [Suspect]
     Dosage: DOSE WILL BE STEADILY INCREASED TO 180 MCG MAXIMUM.
     Route: 058
     Dates: start: 20050613
  3. RIBAVIRIN [Suspect]
     Route: 048
     Dates: start: 20041122, end: 20050514
  4. RIBAVIRIN [Suspect]
     Route: 048
     Dates: start: 20050609
  5. FOLIC ACID [Concomitant]
     Dates: start: 20041213
  6. ACETAMINOPHEN [Concomitant]
     Dates: start: 20041213

REACTIONS (1)
  - DIABETIC KETOACIDOSIS [None]
